FAERS Safety Report 5825346-1 (Version None)
Quarter: 2008Q3

REPORT INFORMATION
  Report Type: 
  Country: None (occurrence: None)
  Receive Date: 20080729
  Receipt Date: 20080723
  Transmission Date: 20090109
  Serious: Yes (Hospitalization)
  Sender: FDA-Public Use
  Company Number: PHHO2006JP09346

PATIENT
  Sex: Male
  Weight: 62 kg

DRUGS (1)
  1. COTAREG T32564+TAB [Suspect]
     Indication: ESSENTIAL HYPERTENSION
     Dosage: 80MG/12.5MG
     Route: 048
     Dates: start: 20060511, end: 20060527

REACTIONS (8)
  - BLISTER [None]
  - DRUG ERUPTION [None]
  - ERYTHEMA [None]
  - LIP SWELLING [None]
  - ORAL DISORDER [None]
  - RASH [None]
  - RASH PAPULAR [None]
  - WOUND [None]
